FAERS Safety Report 24607034 (Version 1)
Quarter: 2024Q4

REPORT INFORMATION
  Report Type: Spontaneous
  Country: US (occurrence: US)
  Receive Date: 20241112
  Receipt Date: 20241112
  Transmission Date: 20250115
  Serious: No
  Sender: TEVA
  Company Number: US-TEVA-VS-3213961

PATIENT
  Age: 59 Year
  Sex: Male
  Weight: 83.5 kg

DRUGS (2)
  1. AUSTEDO [Suspect]
     Active Substance: DEUTETRABENAZINE
     Indication: Huntington^s disease
     Dosage: TIME INTERVAL: 0.33333333 DAYS
     Route: 065
  2. AUSTEDO [Suspect]
     Active Substance: DEUTETRABENAZINE
     Indication: Huntington^s disease
     Dosage: TIME INTERVAL: 0.33333333 DAYS: AUSTEDO 9MG PLUS AUSTEDO 6 MG,?TAKING 1 TABLET OF EACH STRENGTH (...
     Route: 048

REACTIONS (2)
  - Off label use [Unknown]
  - Weight increased [Unknown]
